FAERS Safety Report 9046269 (Version 2)
Quarter: 2013Q2

REPORT INFORMATION
  Report Type: Report from Study
  Country: CA (occurrence: CA)
  Receive Date: 20130201
  Receipt Date: 20130611
  Transmission Date: 20140414
  Serious: Yes (Other)
  Sender: FDA-Public Use
  Company Number: CA-JNJFOC-20130112436

PATIENT
  Sex: Male
  Weight: 99 kg

DRUGS (2)
  1. REMICADE [Suspect]
     Indication: ALOPECIA SCARRING
     Dosage: WEEK 0
     Route: 042
     Dates: start: 20121214
  2. REMICADE [Suspect]
     Indication: ALOPECIA SCARRING
     Dosage: WEEK 2
     Route: 042
     Dates: start: 20121228

REACTIONS (2)
  - Anogenital warts [Unknown]
  - Fungal infection [Unknown]
